FAERS Safety Report 11310309 (Version 2)
Quarter: 2015Q3

REPORT INFORMATION
  Report Type: Spontaneous
  Country: JP (occurrence: JP)
  Receive Date: 20150724
  Receipt Date: 20150806
  Transmission Date: 20151125
  Serious: Yes (Other)
  Sender: FDA-Public Use
  Company Number: JP-BAYER-2015-381179

PATIENT
  Age: 34 Year
  Sex: Female

DRUGS (2)
  1. BAYASPIRIN [Suspect]
     Active Substance: ASPIRIN
     Dosage: UNK
     Route: 048
  2. METHYLDOPA. [Concomitant]
     Active Substance: METHYLDOPA
     Indication: HYPERTENSION
     Route: 048

REACTIONS (5)
  - Foetal growth restriction [None]
  - Maternal exposure during pregnancy [Recovered/Resolved]
  - Hyperphosphataemia [None]
  - Azotaemia [None]
  - Caesarean section [Recovered/Resolved]
